FAERS Safety Report 10364314 (Version 1)
Quarter: 2014Q3

REPORT INFORMATION
  Report Type: Spontaneous
  Country: US (occurrence: US)
  Receive Date: 20140806
  Receipt Date: 20140806
  Transmission Date: 20150326
  Serious: Yes (Other)
  Sender: FDA-Public Use
  Company Number: US-AMGEN-USASP2014058118

PATIENT
  Sex: Female
  Weight: 58.05 kg

DRUGS (1)
  1. PROLIA [Suspect]
     Active Substance: DENOSUMAB
     Indication: OSTEOPOROSIS POSTMENOPAUSAL
     Dosage: UNK
     Route: 065

REACTIONS (14)
  - Vitamin D deficiency [Unknown]
  - General physical health deterioration [Unknown]
  - Hyperlipidaemia [Unknown]
  - Osteoarthritis [Unknown]
  - Oestrogen deficiency [Unknown]
  - Asthenia [Unknown]
  - Inadequate diet [Unknown]
  - Breast cancer [Unknown]
  - Mobility decreased [Unknown]
  - Body height decreased [Unknown]
  - Renal failure chronic [Unknown]
  - Activities of daily living impaired [Unknown]
  - Decreased activity [Unknown]
  - Back pain [Unknown]
